FAERS Safety Report 5512913-8 (Version None)
Quarter: 2007Q4

REPORT INFORMATION
  Report Type: 
  Country: None (occurrence: None)
  Receive Date: 20071112
  Receipt Date: 20071109
  Transmission Date: 20080405
  Serious: Yes (Hospitalization)
  Sender: FDA-Public Use
  Company Number: B0494568A

PATIENT
  Age: 60 Year
  Sex: Male
  Weight: 82 kg

DRUGS (6)
  1. LAPATINIB [Suspect]
     Route: 048
     Dates: start: 20071016, end: 20071031
  2. CISPLATIN [Suspect]
     Route: 042
     Dates: start: 20071016, end: 20071016
  3. FLUOROURACIL [Suspect]
     Route: 042
     Dates: start: 20071016, end: 20071021
  4. DOCETAXEL [Suspect]
     Route: 042
     Dates: start: 20071016, end: 20071016
  5. RADIOTHERAPY [Suspect]
  6. CARBOPLATIN [Suspect]

REACTIONS (1)
  - RENAL FAILURE [None]
